FAERS Safety Report 5751609-4 (Version None)
Quarter: 2008Q2

REPORT INFORMATION
  Report Type: 
  Country: None (occurrence: None)
  Receive Date: 20080528
  Receipt Date: 20080520
  Transmission Date: 20081010
  Serious: Yes (Other)
  Sender: FDA-Public Use
  Company Number: PHHY2008GR08652

PATIENT
  Sex: Female
  Weight: 43 kg

DRUGS (3)
  1. MIACALCIN [Suspect]
     Indication: OSTEOPOROSIS
  2. FOSAMAX [Concomitant]
  3. LOSEC I.V. [Concomitant]

REACTIONS (5)
  - GASTRITIS [None]
  - OESOPHAGITIS [None]
  - PRODUCTIVE COUGH [None]
  - RHINITIS [None]
  - SNEEZING [None]
